FAERS Safety Report 6106263-9 (Version None)
Quarter: 2009Q1

REPORT INFORMATION
  Report Type: 
  Country: None (occurrence: None)
  Receive Date: 20090306
  Receipt Date: 20090219
  Transmission Date: 20090719
  Serious: Yes (Other)
  Sender: FDA-Public Use
  Company Number: PHHY2009NL06527

PATIENT
  Sex: Female

DRUGS (7)
  1. DIOVAN HCT [Suspect]
     Dosage: 160 MG VALSARTAN/25 MG HYDROCHLOROTHIAZIDE, ONCE PER DAY
  2. ACENOCOUMAROL [Suspect]
     Dosage: 1 MG, UNK
  3. SOTALOL HCL [Suspect]
     Dosage: 80 MG, TID
  4. OXAZEPAM [Concomitant]
     Dosage: 10 MG, UNK
  5. INHIBIN ^AMSTERDAMSE CHININEFABRIK^ [Concomitant]
     Dosage: 100 MG, UNK
  6. LACTULOSE [Concomitant]
     Dosage: 12 G, UNK
  7. OMEPRAZOL ^ACYFABRIK^ [Concomitant]
     Dosage: 20 MG, UNK

REACTIONS (7)
  - ALOPECIA [None]
  - CARDIAC FAILURE [None]
  - DEAFNESS [None]
  - DIZZINESS [None]
  - HEADACHE [None]
  - NAUSEA [None]
  - TINNITUS [None]
